FAERS Safety Report 7757583-3 (Version None)
Quarter: 2011Q3

REPORT INFORMATION
  Report Type: 
  Country: None (occurrence: None)
  Receive Date: 20110916
  Receipt Date: 20110901
  Transmission Date: 20111222
  Serious: Yes (Death, Other)
  Sender: FDA-Public Use
  Company Number: GB-BAUSCH-2011BL005921

PATIENT
  Age: 11 Year
  Sex: Male

DRUGS (3)
  1. PREDNISOLONE [Suspect]
     Route: 048
  2. CYCLOPHOSPHAMIDE [Suspect]
     Indication: WEGENER'S GRANULOMATOSIS
     Route: 042
  3. PREDNISOLONE [Suspect]
     Indication: WEGENER'S GRANULOMATOSIS
     Route: 048

REACTIONS (11)
  - SKIN INFECTION [None]
  - HERPES ZOSTER [None]
  - DIARRHOEA [None]
  - CUSHING'S SYNDROME [None]
  - SUDDEN DEATH [None]
  - DEPRESSION [None]
  - INFECTION IN AN IMMUNOCOMPROMISED HOST [None]
  - WEGENER'S GRANULOMATOSIS [None]
  - DISEASE RECURRENCE [None]
  - RESPIRATORY DISORDER [None]
  - INFERTILITY [None]
